FAERS Safety Report 17698886 (Version 1)
Quarter: 2020Q2

REPORT INFORMATION
  Report Type: Spontaneous
  Country: US (occurrence: US)
  Receive Date: 20200423
  Receipt Date: 20200423
  Transmission Date: 20200714
  Serious: No
  Sender: FDA-Public Use
  Company Number: None

PATIENT
  Age: 27 Year
  Sex: Female
  Weight: 63 kg

DRUGS (2)
  1. BIO-X4 PROBIOTIC [Concomitant]
  2. TRANSDERM SCOP [Suspect]
     Active Substance: SCOPOLAMINE
     Indication: PRODUCT USED FOR UNKNOWN INDICATION
     Dosage: ?          QUANTITY:1 PATCH(ES);OTHER FREQUENCY:Q72H;?
     Route: 062
     Dates: start: 20200417, end: 20200420

REACTIONS (7)
  - Dizziness [None]
  - Nausea [None]
  - Incorrect product administration duration [None]
  - Vomiting [None]
  - Headache [None]
  - Expired product administered [None]
  - Photophobia [None]

NARRATIVE: CASE EVENT DATE: 20200421
